FAERS Safety Report 8157569-3 (Version None)
Quarter: 2012Q1

REPORT INFORMATION
  Report Type: 
  Country: None (occurrence: None)
  Receive Date: 20120222
  Receipt Date: 20110426
  Transmission Date: 20120608
  Serious: No
  Sender: FDA-Public Use
  Company Number: US-ASTRAZENECA-2011SE24366

PATIENT
  Age: 80 Year
  Sex: Male

DRUGS (3)
  1. NORVASC [Suspect]
  2. COUMADIN [Suspect]
  3. ATENOLOL [Suspect]
     Route: 048

REACTIONS (2)
  - JOINT SWELLING [None]
  - OEDEMA PERIPHERAL [None]
